FAERS Safety Report 5009469-5 (Version None)
Quarter: 2006Q2

REPORT INFORMATION
  Report Type: 
  Country: None (occurrence: None)
  Receive Date: 20060524
  Receipt Date: 20060517
  Transmission Date: 20061013
  Serious: Yes (Hospitalization)
  Sender: FDA-Public Use
  Company Number: US-BRISTOL-MYERS SQUIBB COMPANY-13380969

PATIENT
  Age: 76 Year
  Sex: Female

DRUGS (3)
  1. ERBITUX [Suspect]
     Indication: NON-SMALL CELL LUNG CANCER
     Dosage: THERAPY START DATE 19-APR-06. DELAYED/OMITTED.
     Route: 042
     Dates: start: 20060509, end: 20060509
  2. CARBOPLATIN [Suspect]
     Indication: NON-SMALL CELL LUNG CANCER
     Dosage: THERAPY START DATE 19-APR-06.
     Route: 042
     Dates: start: 20060509, end: 20060509
  3. TAXOTERE [Suspect]
     Indication: NON-SMALL CELL LUNG CANCER
     Dosage: THERAPY START DATE 19-APR-2006.
     Route: 042
     Dates: start: 20060509, end: 20060509

REACTIONS (1)
  - ILEUS [None]
